FAERS Safety Report 21574339 (Version 2)
Quarter: 2022Q4

REPORT INFORMATION
  Report Type: Report from Study
  Country: IT (occurrence: IT)
  Receive Date: 20221109
  Receipt Date: 20221119
  Transmission Date: 20230113
  Serious: Yes (Other)
  Sender: FDA-Public Use
  Company Number: IT-ROCHE-2697983

PATIENT
  Sex: Female

DRUGS (11)
  1. BENDAMUSTINE HYDROCHLORIDE [Suspect]
     Active Substance: BENDAMUSTINE HYDROCHLORIDE
     Indication: Product used for unknown indication
     Dosage: (CYCLIC) FIRST DOSE ON 30/SEP/2020 AND SECOND DOSE ON 01/OCT/2020.
     Route: 042
     Dates: start: 20200930, end: 20201001
  2. OBINUTUZUMAB [Suspect]
     Active Substance: OBINUTUZUMAB
     Indication: Follicular lymphoma
     Dosage: (NUMBER OF CYCLES)
     Route: 065
     Dates: start: 20200610
  3. OBINUTUZUMAB [Suspect]
     Active Substance: OBINUTUZUMAB
     Dosage: (NUMBER OF CYCLES)
     Route: 065
     Dates: start: 20200610
  4. TACHIPIRINA [Concomitant]
     Active Substance: ACETAMINOPHEN
     Indication: Product used for unknown indication
     Route: 048
     Dates: start: 20200605
  5. FOLIC ACID [Concomitant]
     Active Substance: FOLIC ACID
     Indication: Product used for unknown indication
     Route: 065
     Dates: start: 20210813
  6. Dobetin [Concomitant]
     Indication: Product used for unknown indication
     Route: 065
     Dates: start: 20210813
  7. ENOXAPARIN SODIUM [Concomitant]
     Active Substance: ENOXAPARIN SODIUM
     Indication: Oedema peripheral
     Dosage: (1 AMPULE)
     Route: 058
     Dates: start: 20200617, end: 20200903
  8. LASIX [Concomitant]
     Active Substance: FUROSEMIDE
     Indication: Product used for unknown indication
     Dosage: 1 DOSAGE FORMS DAILY;
     Route: 048
     Dates: start: 20200605, end: 20200615
  9. LASIX [Concomitant]
     Active Substance: FUROSEMIDE
     Dosage: 2 DOSAGE FORMS DAILY;
     Route: 048
     Dates: start: 20200616, end: 20200624
  10. MAGNESIUM ASPARTATE\POTASSIUM ASPARTATE [Concomitant]
     Active Substance: MAGNESIUM ASPARTATE\POTASSIUM ASPARTATE
     Indication: Product used for unknown indication
     Dosage: 1 (OTHER) (UNITS NOT PROVIDED),
     Route: 048
     Dates: start: 20200624
  11. FILGRASTIM [Concomitant]
     Active Substance: FILGRASTIM
     Indication: Product used for unknown indication
     Route: 065
     Dates: start: 20201101

REACTIONS (10)
  - Pemphigus [Not Recovered/Not Resolved]
  - Neutropenia [Recovered/Resolved]
  - Pruritus [Recovered/Resolved]
  - Rash [Recovered/Resolved]
  - White blood cell count decreased [Recovered/Resolved]
  - Anaemia macrocytic [Recovered/Resolved]
  - Arthralgia [Recovered/Resolved]
  - Spinal osteoarthritis [Recovering/Resolving]
  - Anaemia [Recovering/Resolving]
  - Intervertebral disc degeneration [Recovering/Resolving]

NARRATIVE: CASE EVENT DATE: 20200930
